FAERS Safety Report 5313119-8 (Version None)
Quarter: 2007Q1

REPORT INFORMATION
  Report Type: 
  Country: None (occurrence: None)
  Receive Date: 20070201
  Receipt Date: 20061106
  Transmission Date: 20070707
  Serious: No
  Sender: FDA-Public Use
  Company Number: VNL_0285_2006

PATIENT
  Age: 70 Year
  Sex: Male
  Weight: 89.8122 kg

DRUGS (10)
  1. APOKYN [Suspect]
     Indication: PARKINSON'S DISEASE
     Dosage: 0.2 ML SC
     Route: 058
     Dates: start: 20050101, end: 20060101
  2. APOKYN [Suspect]
     Indication: PARKINSON'S DISEASE
     Dosage: 01. ML SC
     Route: 058
     Dates: start: 20060101
  3. SINEMET [Concomitant]
  4. PERMAX [Concomitant]
  5. TEGRETOL [Concomitant]
  6. DETROPAN [Concomitant]
  7. IRON [Concomitant]
  8. NAMENDA [Concomitant]
  9. PLAVIX [Concomitant]
  10. ASPIRIN [Concomitant]

REACTIONS (4)
  - CEREBROVASCULAR ACCIDENT [None]
  - DRUG EFFECT DECREASED [None]
  - PHARMACEUTICAL PRODUCT COMPLAINT [None]
  - SOMNOLENCE [None]
